FAERS Safety Report 6244555-3 (Version None)
Quarter: 2009Q2

REPORT INFORMATION
  Report Type: 
  Country: None (occurrence: None)
  Receive Date: 20090625
  Receipt Date: 20090610
  Transmission Date: 20091009
  Serious: Yes (Other)
  Sender: FDA-Public Use
  Company Number: US-ABBOTT-09P-163-0579012-00

PATIENT
  Sex: Male
  Weight: 76.272 kg

DRUGS (5)
  1. HUMIRA [Suspect]
     Indication: ANKYLOSING SPONDYLITIS
     Route: 058
     Dates: start: 20080101, end: 20090506
  2. HUMIRA [Suspect]
     Indication: ARTHRITIS
     Dosage: SWITCHED TO HUMIRA PEN THERAPY
     Dates: start: 20090501
  3. FELDINE [Concomitant]
     Indication: ANKYLOSING SPONDYLITIS
     Route: 048
  4. WELLBUTRIN [Concomitant]
     Indication: FEELING ABNORMAL
     Route: 048
  5. FOSAMAX [Concomitant]
     Indication: OSTEOPOROSIS

REACTIONS (11)
  - ANKYLOSING SPONDYLITIS [None]
  - BILE DUCT OBSTRUCTION [None]
  - CHILLS [None]
  - CHROMATURIA [None]
  - COMPUTERISED TOMOGRAM ABDOMEN ABNORMAL [None]
  - DRUG INEFFECTIVE [None]
  - DRY SKIN [None]
  - HEPATIC ENZYME INCREASED [None]
  - JAUNDICE [None]
  - PYREXIA [None]
  - TOOTH FRACTURE [None]
